FAERS Safety Report 8490714-9 (Version None)
Quarter: 2012Q3

REPORT INFORMATION
  Report Type: 
  Country: None (occurrence: None)
  Receive Date: 20120706
  Receipt Date: 20120626
  Transmission Date: 20120928
  Serious: Yes (Other)
  Sender: FDA-Public Use
  Company Number: ES-PAR PHARMACEUTICAL, INC-2012SCPR004464

PATIENT

DRUGS (3)
  1. FLUOXETINE [Concomitant]
     Indication: SCHIZOPHRENIA
     Dosage: 20 MG, / DAY
     Route: 065
  2. OLANZAPINE [Suspect]
     Indication: SCHIZOPHRENIA
     Dosage: 15 MG, / DAY
     Route: 065
  3. DIAZEPAM [Concomitant]
     Indication: SCHIZOPHRENIA
     Dosage: 10 MG, / DAY
     Route: 065

REACTIONS (1)
  - METAPLASIA [None]
